FAERS Safety Report 6209490-5 (Version None)
Quarter: 2009Q2

REPORT INFORMATION
  Report Type: 
  Country: None (occurrence: None)
  Receive Date: 20090601
  Receipt Date: 20090429
  Transmission Date: 20091009
  Serious: No
  Sender: FDA-Public Use
  Company Number: US-BAYER-200820463NA

PATIENT

DRUGS (1)
  1. BETASERON [Suspect]
     Indication: UNEVALUABLE EVENT

REACTIONS (1)
  - ULCER [None]
